FAERS Safety Report 15496532 (Version 2)
Quarter: 2018Q4

REPORT INFORMATION
  Report Type: Spontaneous
  Country: US (occurrence: US)
  Receive Date: 20181013
  Receipt Date: 20181105
  Transmission Date: 20190205
  Serious: No
  Sender: FDA-Public Use
  Company Number: US-SHIRE-US201839545

PATIENT
  Sex: Male

DRUGS (1)
  1. ELAPRASE [Suspect]
     Active Substance: IDURSULFASE
     Indication: PRODUCT USED FOR UNKNOWN INDICATION
     Dosage: 21 MG, UNK
     Route: 065
     Dates: start: 201107

REACTIONS (5)
  - Catheter site erythema [Unknown]
  - Catheter site swelling [Unknown]
  - Lethargy [Recovered/Resolved]
  - Pallor [Unknown]
  - Catheter site rash [Unknown]

NARRATIVE: CASE EVENT DATE: 20180523
